FAERS Safety Report 5199702-1 (Version None)
Quarter: 2007Q1

REPORT INFORMATION
  Report Type: 
  Country: None (occurrence: None)
  Receive Date: 20070105
  Receipt Date: 20061228
  Transmission Date: 20070707
  Serious: Yes (Disabling)
  Sender: FDA-Public Use
  Company Number: PHBS2006JP20031

PATIENT
  Age: 70 Year
  Sex: Female

DRUGS (5)
  1. RESCULA [Suspect]
     Indication: OCULAR HYPERTENSION
     Dosage: 4 DRP, UNK
     Dates: start: 20060627, end: 20060928
  2. SANCOBA [Concomitant]
     Dosage: 8 UNK, UNK
     Dates: start: 20040902
  3. HYALEIN [Concomitant]
     Dosage: 8-12 DRPS, UNK
     Dates: start: 20050808
  4. LENDORMIN [Concomitant]
     Dosage: 0.5 MG, UNK
     Route: 048
     Dates: start: 20040116
  5. TAKEPRON [Concomitant]
     Dosage: 15 MG, UNK
     Route: 048
     Dates: start: 20041216

REACTIONS (2)
  - MACULAR OEDEMA [None]
  - VISUAL ACUITY REDUCED [None]
